FAERS Safety Report 12604934 (Version 2)
Quarter: 2016Q3

REPORT INFORMATION
  Report Type: Spontaneous
  Country: US (occurrence: US)
  Receive Date: 20160728
  Receipt Date: 20160816
  Transmission Date: 20161109
  Serious: Yes (Other)
  Sender: FDA-Public Use
  Company Number: US-JAZZ-2016-US-013843

PATIENT
  Sex: Female

DRUGS (21)
  1. XYREM [Suspect]
     Active Substance: SODIUM OXYBATE
     Dosage: 3 G, BID
     Route: 048
     Dates: start: 200804, end: 200805
  2. NUVIGIL [Concomitant]
     Active Substance: ARMODAFINIL
     Indication: PRODUCT USED FOR UNKNOWN INDICATION
  3. TOPAMAX [Concomitant]
     Active Substance: TOPIRAMATE
     Indication: PRODUCT USED FOR UNKNOWN INDICATION
     Dosage: UNK
     Dates: start: 20160628
  4. FLONASE [Concomitant]
     Active Substance: FLUTICASONE PROPIONATE
     Indication: PRODUCT USED FOR UNKNOWN INDICATION
  5. INDERAL LA [Concomitant]
     Active Substance: PROPRANOLOL HYDROCHLORIDE
     Indication: PRODUCT USED FOR UNKNOWN INDICATION
  6. KLONOPIN [Concomitant]
     Active Substance: CLONAZEPAM
     Indication: PRODUCT USED FOR UNKNOWN INDICATION
  7. BUSPIRONE HCL [Concomitant]
     Active Substance: BUSPIRONE HYDROCHLORIDE
     Indication: PRODUCT USED FOR UNKNOWN INDICATION
  8. EFFEXOR XR [Concomitant]
     Active Substance: VENLAFAXINE HYDROCHLORIDE
     Indication: PRODUCT USED FOR UNKNOWN INDICATION
  9. LEVOTHYROXINE. [Concomitant]
     Active Substance: LEVOTHYROXINE
     Indication: PRODUCT USED FOR UNKNOWN INDICATION
  10. RITALIN [Concomitant]
     Active Substance: METHYLPHENIDATE HYDROCHLORIDE
     Indication: PRODUCT USED FOR UNKNOWN INDICATION
  11. XYREM [Suspect]
     Active Substance: SODIUM OXYBATE
     Dosage: 4.5 G, BID
     Route: 048
     Dates: start: 200805
  12. DESMOPRESSIN ACETATE. [Concomitant]
     Active Substance: DESMOPRESSIN ACETATE
     Indication: PRODUCT USED FOR UNKNOWN INDICATION
  13. PROSCAR [Concomitant]
     Active Substance: FINASTERIDE
     Indication: PRODUCT USED FOR UNKNOWN INDICATION
  14. XYREM [Suspect]
     Active Substance: SODIUM OXYBATE
     Indication: NARCOLEPSY
     Dosage: 2.25 G, BID
     Route: 048
     Dates: start: 200803, end: 200804
  15. MIRENA [Concomitant]
     Active Substance: LEVONORGESTREL
     Indication: PRODUCT USED FOR UNKNOWN INDICATION
  16. PROPRANOLOL [Concomitant]
     Active Substance: PROPRANOLOL\PROPRANOLOL HYDROCHLORIDE
     Indication: PRODUCT USED FOR UNKNOWN INDICATION
     Dosage: UNK
     Dates: start: 20150302
  17. DITROPAN XL [Concomitant]
     Active Substance: OXYBUTYNIN CHLORIDE
     Indication: PRODUCT USED FOR UNKNOWN INDICATION
  18. GEODON [Concomitant]
     Active Substance: ZIPRASIDONE HYDROCHLORIDE\ZIPRASIDONE MESYLATE
     Indication: PRODUCT USED FOR UNKNOWN INDICATION
  19. NEXIUM [Concomitant]
     Active Substance: ESOMEPRAZOLE MAGNESIUM
     Indication: PRODUCT USED FOR UNKNOWN INDICATION
     Dosage: UNK
     Dates: end: 201407
  20. SPIRONOLACTONE. [Concomitant]
     Active Substance: SPIRONOLACTONE
     Indication: PRODUCT USED FOR UNKNOWN INDICATION
  21. WELLBUTRIN XL [Concomitant]
     Active Substance: BUPROPION HYDROCHLORIDE
     Indication: PRODUCT USED FOR UNKNOWN INDICATION

REACTIONS (5)
  - Polycystic ovaries [Unknown]
  - Hypertension [Not Recovered/Not Resolved]
  - Restless legs syndrome [Not Recovered/Not Resolved]
  - Anaemia [Not Recovered/Not Resolved]
  - Hypothyroidism [Unknown]
